FAERS Safety Report 8898712 (Version 1)
Quarter: 2012Q4

REPORT INFORMATION
  Report Type: 
  Country: GB (occurrence: GB)
  Receive Date: 20121108
  Receipt Date: 20121108
  Transmission Date: 20130627
  Serious: Yes (Death)
  Sender: FDA-Public Use
  Company Number: GB-009507513-1207GBR001982

PATIENT
  Age: 73 Year
  Sex: Female

DRUGS (3)
  1. JANUVIA [Suspect]
     Indication: GLYCOSYLATED HAEMOGLOBIN INCREASED
     Dosage: 1 DF, qd
     Route: 048
     Dates: start: 20120430
  2. METFORMIN [Concomitant]
  3. GLICLAZIDE [Concomitant]

REACTIONS (5)
  - Death [Fatal]
  - Blood glucose increased [Unknown]
  - Malaise [Unknown]
  - Psychomotor hyperactivity [Unknown]
  - Off label use [Unknown]
